FAERS Safety Report 11127262 (Version 1)
Quarter: 2015Q2

REPORT INFORMATION
  Report Type: Spontaneous
  Country: US (occurrence: None)
  Receive Date: 20150519
  Receipt Date: 20150519
  Transmission Date: 20150821
  Serious: Yes (Other)
  Sender: FDA-Public Use
  Company Number: IPC201505-000296

PATIENT
  Age: 66 Year
  Sex: Male

DRUGS (4)
  1. METOPROLOL TARTRATE. [Suspect]
     Active Substance: METOPROLOL TARTRATE
     Indication: ISCHAEMIA
  2. DOFETILIDE [Suspect]
     Active Substance: DOFETILIDE
     Indication: ATRIAL FIBRILLATION
  3. ASPIRIN. [Concomitant]
     Active Substance: ASPIRIN
  4. DABIGATRAN [Concomitant]
     Active Substance: DABIGATRAN

REACTIONS (2)
  - Torsade de pointes [None]
  - Ventricular fibrillation [None]
